FAERS Safety Report 4588946-5 (Version None)
Quarter: 2005Q1

REPORT INFORMATION
  Report Type: 
  Country: None (occurrence: None)
  Receive Date: 20050216
  Receipt Date: 20050202
  Transmission Date: 20050727
  Serious: Yes (Death, Hospitalization)
  Sender: FDA-Public Use
  Company Number: US_0502111752

PATIENT
  Age: 57 Year
  Sex: Male
  Weight: 110 kg

DRUGS (8)
  1. ALIMTA [Suspect]
     Indication: PERITONEAL MESOTHELIOMA MALIGNANT
     Dosage: 500 MG/M2
     Dates: start: 20050106
  2. CISPLATIN [Concomitant]
  3. VITAMIN B-12 [Concomitant]
  4. MULTIVITAMIN [Concomitant]
  5. DEXAMETHASONE [Concomitant]
  6. LISINOPRIL [Concomitant]
  7. LEVAQUIN [Concomitant]
  8. ARANESP [Concomitant]

REACTIONS (18)
  - CARDIOMEGALY [None]
  - CHOLELITHIASIS [None]
  - DISEASE PROGRESSION [None]
  - DYSPNOEA EXACERBATED [None]
  - HEPATIC FAILURE [None]
  - METASTASES TO LIVER [None]
  - NEPHROPATHY [None]
  - NIGHT SWEATS [None]
  - PANCREATIC NECROSIS [None]
  - PANCYTOPENIA [None]
  - PLEURAL EFFUSION [None]
  - PULMONARY CONGESTION [None]
  - PULMONARY EMBOLISM [None]
  - RENAL FAILURE [None]
  - RENAL TUBULAR NECROSIS [None]
  - SPLENOMEGALY [None]
  - WEIGHT DECREASED [None]
  - WHITE BLOOD CELL COUNT INCREASED [None]
